FAERS Safety Report 22297727 (Version 1)
Quarter: 2023Q2

REPORT INFORMATION
  Report Type: Spontaneous
  Country: AU (occurrence: AU)
  Receive Date: 20230509
  Receipt Date: 20230509
  Transmission Date: 20230722
  Serious: Yes (Hospitalization)
  Sender: FDA-Public Use
  Company Number: AU-STRIDES ARCOLAB LIMITED-2023SP006672

PATIENT
  Age: 61 Year
  Sex: Female

DRUGS (2)
  1. TRAMADOL [Suspect]
     Active Substance: TRAMADOL
     Indication: Bipolar disorder
     Dosage: UNK
     Route: 065
  2. TEMAZEPAM [Suspect]
     Active Substance: TEMAZEPAM
     Indication: Bipolar disorder
     Dosage: UNK
     Route: 065

REACTIONS (10)
  - Leukoencephalopathy [Recovered/Resolved]
  - Cognitive disorder [Unknown]
  - Disinhibition [Unknown]
  - Unresponsive to stimuli [Unknown]
  - Depressed level of consciousness [Unknown]
  - Hypoxia [Recovered/Resolved]
  - Hypotension [Recovered/Resolved]
  - Mood swings [Unknown]
  - Intentional overdose [Unknown]
  - Off label use [Unknown]
